FAERS Safety Report 11483599 (Version 1)
Quarter: 2015Q3

REPORT INFORMATION
  Report Type: Spontaneous
  Country: US (occurrence: US)
  Receive Date: 20150903
  Receipt Date: 20150903
  Transmission Date: 20151125
  Serious: No
  Sender: FDA-Public Use
  Company Number: US-ELI_LILLY_AND_COMPANY-US201207003780

PATIENT
  Age: 57 Year
  Sex: Female

DRUGS (1)
  1. CYMBALTA [Suspect]
     Active Substance: DULOXETINE HYDROCHLORIDE
     Indication: FIBROMYALGIA
     Dosage: 60 MG, QD
     Dates: end: 20120706

REACTIONS (7)
  - Sleep terror [Unknown]
  - Asthenia [Unknown]
  - Hyperhidrosis [Unknown]
  - Headache [Unknown]
  - Bone disorder [Unknown]
  - Nausea [Unknown]
  - Pain [Unknown]
